FAERS Safety Report 12943822 (Version 1)
Quarter: 2016Q4

REPORT INFORMATION
  Report Type: Spontaneous
  Country: US (occurrence: US)
  Receive Date: 20161115
  Receipt Date: 20161115
  Transmission Date: 20170207
  Serious: No
  Sender: FDA-Public Use
  Company Number: US-ROCHE-1742167

PATIENT
  Sex: Male
  Weight: 65.38 kg

DRUGS (1)
  1. TAMIFLU [Suspect]
     Active Substance: OSELTAMIVIR PHOSPHATE
     Indication: ANTIVIRAL PROPHYLAXIS
     Dosage: 75 MG TWICE DAILY
     Route: 065

REACTIONS (2)
  - Rash [Recovered/Resolved]
  - Blister [Not Recovered/Not Resolved]
